FAERS Safety Report 17015010 (Version 1)
Quarter: 2019Q4

REPORT INFORMATION
  Report Type: Spontaneous
  Country: GB (occurrence: GB)
  Receive Date: 20191111
  Receipt Date: 20191111
  Transmission Date: 20200122
  Serious: Yes (Hospitalization)
  Sender: FDA-Public Use
  Company Number: GB-TEVA-2019-GB-1135364

PATIENT
  Age: 83 Year
  Sex: Female

DRUGS (13)
  1. FEXOFENADINE [Concomitant]
     Active Substance: FEXOFENADINE HYDROCHLORIDE
     Dosage: AT NIGHT, 180 MG PER DAY
  2. SIRDUPLA [Concomitant]
     Active Substance: FLUTICASONE PROPIONATE\SALMETEROL XINAFOATE
     Dosage: 25MICROGRAMS/DOSE / 250MICROGRAMS/DOSE,  2 DOSAGE FORMS PER DAY, INHALER
     Route: 055
  3. PARACETAMOL [Concomitant]
     Active Substance: ACETAMINOPHEN
     Dosage: 4 GRAM DAILY; FOUR TIMES A DAY
  4. BISOPROLOL [Concomitant]
     Active Substance: BISOPROLOL
     Dosage: 1.25 MG PER DAY
  5. LORATADINE. [Concomitant]
     Active Substance: LORATADINE
     Dosage: IN THE MORNING, 10 MG PER DAY
  6. OMEPRAZOLE. [Suspect]
     Active Substance: OMEPRAZOLE
     Dosage: IN THE MORNING, 40 MG PER DAY
  7. AZELAIC ACID. [Concomitant]
     Active Substance: AZELAIC ACID
     Indication: ROSACEA
     Dosage: 2 DOSAGE FORMS PER DAY
  8. MENTHOL. [Concomitant]
     Active Substance: MENTHOL
  9. SALBUTAMOL [Concomitant]
     Active Substance: ALBUTEROL
     Dosage: 200 MCG,, INHALER. CFC FREE VIA VOLUMATIC MAR.
     Route: 055
  10. SIMPLE LINCTUS [Concomitant]
     Active Substance: AMARANTH\CHLOROFORM\CITRIC ACID MONOHYDRATE\PIMPINELLA ANISUM WHOLE
     Dosage: 30 ML PER DAY
  11. ALLOPURINOL. [Concomitant]
     Active Substance: ALLOPURINOL
     Dosage: 100 MG PER DAY
  12. CITRIC ACID [Concomitant]
     Active Substance: CITRIC ACID MONOHYDRATE
  13. AMLODIPINE [Suspect]
     Active Substance: AMLODIPINE BESYLATE
     Dosage: IN THE MORNING, 5 MG PER DAY

REACTIONS (1)
  - Rash maculo-papular [Unknown]
